FAERS Safety Report 6189348-0 (Version None)
Quarter: 2009Q2

REPORT INFORMATION
  Report Type: 
  Country: None (occurrence: None)
  Receive Date: 20090512
  Receipt Date: 20090424
  Transmission Date: 20091009
  Serious: Yes (Life-Threatening, Hospitalization, Disabling, Other)
  Sender: FDA-Public Use
  Company Number: ADE# 09-168DRP

PATIENT
  Age: 43 Year
  Sex: Male

DRUGS (11)
  1. DIGOXIN [Suspect]
     Indication: ATRIAL FIBRILLATION
     Dosage: ONCE A DAY
  2. KLOR-CON          20MEQA [Concomitant]
     Dosage: 20MGBID
  3. FUROSEMIDE 40MG [Concomitant]
  4. PREVACID [Concomitant]
  5. PROPYL-THIOURACIL [Concomitant]
  6. CARVEDILOL [Concomitant]
  7. WARFARIN SODIUM [Concomitant]
  8. NITROQUICK 0.4MG [Concomitant]
  9. ENALAPRIL 5MG [Concomitant]
  10. SIMVASTATIN [Concomitant]
  11. PANTOPRAZOLE 40MG [Concomitant]

REACTIONS (10)
  - ABDOMINAL PAIN [None]
  - ATRIAL SEPTAL DEFECT ACQUIRED [None]
  - CARDIAC DISORDER [None]
  - CARDIAC FAILURE CONGESTIVE [None]
  - CEREBROVASCULAR ACCIDENT [None]
  - FLUID RETENTION [None]
  - HYPOTENSION [None]
  - MYOCARDIAL INFARCTION [None]
  - PAIN IN EXTREMITY [None]
  - VEIN DISORDER [None]
